FAERS Safety Report 8151918-8 (Version None)
Quarter: 2012Q1

REPORT INFORMATION
  Report Type: 
  Country: None (occurrence: None)
  Receive Date: 20120221
  Receipt Date: 20120216
  Transmission Date: 20120608
  Serious: No
  Sender: FDA-Public Use
  Company Number: US-PFIZER INC-2012042597

PATIENT
  Sex: Female
  Weight: 79.82 kg

DRUGS (13)
  1. HYDROXYZINE [Concomitant]
     Dosage: UNK
  2. ALLOPURINOL [Concomitant]
     Dosage: UNK
  3. POTASSIUM [Concomitant]
     Dosage: UNK
  4. ROPINIROLE [Concomitant]
     Dosage: UNK
  5. NORVASC [Suspect]
     Indication: HYPERTENSION
     Dosage: 10 MG, 1X/DAY
     Route: 048
  6. XALATAN [Suspect]
     Indication: GLAUCOMA
     Dosage: UNK, 1X/DAY
  7. MULTI-VITAMINS [Concomitant]
     Dosage: UNK
  8. DIPYRIDAMOLE [Concomitant]
     Dosage: UNK
  9. PAXIL [Concomitant]
     Dosage: UNK
  10. XANAX [Concomitant]
     Dosage: UNK
  11. DETROL [Concomitant]
     Dosage: UNK
  12. NAPROXEN [Concomitant]
     Dosage: UNK
  13. PRAVASTATIN [Concomitant]
     Dosage: UNK

REACTIONS (3)
  - INTRAOCULAR PRESSURE INCREASED [None]
  - DIPLOPIA [None]
  - ILL-DEFINED DISORDER [None]
